FAERS Safety Report 9965559 (Version 1)
Quarter: 2014Q1

REPORT INFORMATION
  Report Type: Report from Study
  Country: US (occurrence: US)
  Receive Date: 20140305
  Receipt Date: 20140305
  Transmission Date: 20141002
  Serious: No
  Sender: FDA-Public Use
  Company Number: US-ABBVIE-13P-163-1126927-00

PATIENT
  Age: 23 Year
  Sex: Female

DRUGS (3)
  1. HUMIRA [Suspect]
     Indication: CROHN^S DISEASE
     Route: 050
     Dates: start: 201307, end: 201307
  2. HUMIRA [Suspect]
     Dosage: 2ND DOSE OF LOADING DOSE
     Dates: start: 20130726, end: 20130726
  3. HUMIRA [Suspect]

REACTIONS (5)
  - Chromaturia [Unknown]
  - Hot flush [Unknown]
  - Injection site bruising [Unknown]
  - Muscle spasms [Unknown]
  - Headache [Unknown]
